FAERS Safety Report 18546444 (Version 2)
Quarter: 2021Q1

REPORT INFORMATION
  Report Type: Spontaneous
  Country: US (occurrence: US)
  Receive Date: 20201125
  Receipt Date: 20210105
  Transmission Date: 20210419
  Serious: No
  Sender: FDA-Public Use
  Company Number: US-DSJP-DSU-2020-135999

PATIENT
  Sex: Female

DRUGS (1)
  1. TURALIO [Suspect]
     Active Substance: PEXIDARTINIB HYDROCHLORIDE
     Indication: SYNOVITIS
     Dosage: 400MG QAM, 200MG QPM.
     Route: 048
     Dates: start: 20200902

REACTIONS (2)
  - Stress fracture [Recovered/Resolved]
  - Pain in extremity [Not Recovered/Not Resolved]
